FAERS Safety Report 5101081-2 (Version None)
Quarter: 2006Q3

REPORT INFORMATION
  Report Type: 
  Country: None (occurrence: None)
  Receive Date: 20060911
  Receipt Date: 20060828
  Transmission Date: 20061208
  Serious: Yes (Hospitalization)
  Sender: FDA-Public Use
  Company Number: HQWYE078529AUG06

PATIENT
  Sex: Female

DRUGS (3)
  1. ENBREL [Suspect]
     Indication: RHEUMATOID ARTHRITIS
     Route: 058
     Dates: start: 20060626, end: 20060821
  2. TACROLIMUS [Suspect]
     Route: 048
  3. METHOTREXATE [Suspect]

REACTIONS (2)
  - BLOOD BETA-D-GLUCAN INCREASED [None]
  - SPLENOMEGALY [None]
